FAERS Safety Report 25747410 (Version 1)
Quarter: 2025Q3

REPORT INFORMATION
  Report Type: Spontaneous
  Country: CN (occurrence: CN)
  Receive Date: 20250901
  Receipt Date: 20250901
  Transmission Date: 20251020
  Serious: Yes (Hospitalization)
  Sender: ORGANON
  Company Number: CN-ORGANON-O2508CHN002314

PATIENT
  Age: 89 Year
  Sex: Male

DRUGS (3)
  1. SINGULAIR [Suspect]
     Active Substance: MONTELUKAST SODIUM
     Indication: Cough
     Dosage: 10 MILLIGRAM, QD
     Route: 048
     Dates: start: 20250731, end: 20250806
  2. AMBROXOL HYDROCHLORIDE [Suspect]
     Active Substance: AMBROXOL HYDROCHLORIDE
     Indication: Productive cough
     Dosage: 30 MG, QD, INTRAVENOUS DRIP
     Route: 042
     Dates: start: 20250727, end: 20250806
  3. CANNABIS SATIVA SEED\HERBALS [Concomitant]
     Active Substance: CANNABIS SATIVA SEED\HERBALS
     Indication: Constipation
     Dosage: 1.8 GRAM, THREE TIMES IN 11 DAYS
     Route: 048
     Dates: start: 20250804, end: 20250806

REACTIONS (4)
  - Rash macular [Recovered/Resolved]
  - Drug eruption [Recovered/Resolved]
  - Papule [Recovered/Resolved]
  - Product use in unapproved indication [Unknown]

NARRATIVE: CASE EVENT DATE: 20250731
